FAERS Safety Report 22388262 (Version 1)
Quarter: 2023Q2

REPORT INFORMATION
  Report Type: Spontaneous
  Country: AU (occurrence: AU)
  Receive Date: 20230531
  Receipt Date: 20230531
  Transmission Date: 20230722
  Serious: Yes (Other)
  Sender: FDA-Public Use
  Company Number: None

PATIENT

DRUGS (3)
  1. DOCETAXEL [Suspect]
     Active Substance: DOCETAXEL
     Indication: Product used for unknown indication
     Dosage: STRENGTH: 80 MG/4ML, INTRAVENOUS, CONCENTRATED
     Dates: start: 20221118
  2. SODIUM CHLORIDE [Suspect]
     Active Substance: SODIUM CHLORIDE
     Indication: Medication dilution
     Dates: start: 20221118
  3. DEXAMETHASONE [Suspect]
     Active Substance: DEXAMETHASONE
     Indication: Product used for unknown indication
     Dosage: INTRAVENOUS
     Dates: start: 20221118

REACTIONS (5)
  - Dyspnoea [Unknown]
  - Back pain [Unknown]
  - Feeling hot [Unknown]
  - Flushing [Unknown]
  - Adverse drug reaction [Unknown]
